FAERS Safety Report 14914926 (Version 1)
Quarter: 2018Q2

REPORT INFORMATION
  Report Type: Spontaneous
  Country: US (occurrence: US)
  Receive Date: 20180518
  Receipt Date: 20180518
  Transmission Date: 20180711
  Serious: No
  Sender: FDA-Public Use
  Company Number: US-BAYER-2018-088484

PATIENT
  Age: 69 Year
  Sex: Female

DRUGS (2)
  1. EOVIST [Suspect]
     Active Substance: GADOXETATE DISODIUM
     Indication: NUCLEAR MAGNETIC RESONANCE IMAGING
  2. EOVIST [Suspect]
     Active Substance: GADOXETATE DISODIUM
     Indication: HEPATIC LESION
     Dosage: UNK UNK, ONCE
     Route: 042
     Dates: start: 20170428, end: 20170428

REACTIONS (1)
  - Headache [None]

NARRATIVE: CASE EVENT DATE: 20170428
